FAERS Safety Report 9675071 (Version 1)
Quarter: 2013Q4

REPORT INFORMATION
  Report Type: Spontaneous
  Country: US (occurrence: None)
  Receive Date: 20131105
  Receipt Date: 20131105
  Transmission Date: 20140711
  Serious: Yes (Death, Hospitalization)
  Sender: FDA-Public Use
  Company Number: AG-2012-1626

PATIENT
  Age: 60 Year
  Sex: Female
  Weight: 65.8 kg

DRUGS (9)
  1. CHLORAMBUCIL (CHLORAMBUCIL) (UNKNOWN) [Suspect]
     Indication: CHRONIC LYMPHOCYTIC LEUKAEMIA
     Dosage: 16 MG (UNKNOWN, 16MG CYCLIC), ORAL
     Route: 048
     Dates: start: 20120416
  2. INVESTIGATIONAL STUDY DRUG [Suspect]
     Indication: CHRONIC LYMPHOCYTIC LEUKAEMIA
     Dosage: 300 MG (150 MG, 2 IN 1 D), ORAL
     Route: 048
     Dates: start: 20120416
  3. RITUXIMAB (RITUXIMAB) [Suspect]
     Indication: CHRONIC LYMPHOCYTIC LEUKAEMIA
     Dosage: UNK (375 MG/M2, 1 IN 1 MONTHS), IV
     Route: 042
     Dates: start: 20120416
  4. ACYCLOVIR (ACICLOVIR) [Concomitant]
  5. ALDACTONE (SPIRONOLACTONE) [Concomitant]
  6. PROTONIX (PANTOPRAZOLE) [Concomitant]
  7. LASIX (FUROSEMIDE) [Concomitant]
  8. LEXAPRO (ESCITALOPRAM) [Concomitant]
  9. OXYCODONE (OXYCODONE) [Concomitant]

REACTIONS (6)
  - Pyrexia [None]
  - Hypotension [None]
  - Lethargy [None]
  - Oxygen saturation decreased [None]
  - Pseudomonas infection [None]
  - Aspergillus infection [None]
